FAERS Safety Report 14603084 (Version 1)
Quarter: 2018Q1

REPORT INFORMATION
  Report Type: Spontaneous
  Country: US (occurrence: US)
  Receive Date: 20180306
  Receipt Date: 20180306
  Transmission Date: 20180509
  Serious: No
  Sender: FDA-Public Use
  Company Number: US-GLAXOSMITHKLINE-US2018034008

PATIENT
  Sex: Male

DRUGS (1)
  1. NICORETTE [Suspect]
     Active Substance: NICOTINE
     Indication: SMOKING CESSATION THERAPY
     Dosage: UNK

REACTIONS (9)
  - Abdominal distension [Unknown]
  - Blood cholesterol increased [Unknown]
  - Headache [Unknown]
  - Flatulence [Unknown]
  - Blood pressure increased [Unknown]
  - Nicotine dependence [Unknown]
  - Hiccups [Unknown]
  - Adverse drug reaction [Unknown]
  - Thinking abnormal [Unknown]
